FAERS Safety Report 10161021 (Version 1)
Quarter: 2014Q2

REPORT INFORMATION
  Report Type: Spontaneous
  Country: US (occurrence: US)
  Receive Date: 20140508
  Receipt Date: 20140508
  Transmission Date: 20141212
  Serious: No
  Sender: FDA-Public Use
  Company Number: US-PFIZER INC-2014124909

PATIENT
  Age: 67 Year
  Sex: Female
  Weight: 79.82 kg

DRUGS (2)
  1. NEURONTIN [Suspect]
     Indication: NEURALGIA
     Dosage: 300 MG, DAILY
  2. CYMBALTA [Suspect]
     Dosage: 60 MG, DAILY

REACTIONS (1)
  - Drug intolerance [Unknown]
